FAERS Safety Report 5955782-4 (Version None)
Quarter: 2008Q4

REPORT INFORMATION
  Report Type: 
  Country: None (occurrence: None)
  Receive Date: 20081117
  Receipt Date: 20081106
  Transmission Date: 20090506
  Serious: Yes (Other)
  Sender: FDA-Public Use
  Company Number: US-PFIZER INC-2008078669

PATIENT
  Sex: Female
  Weight: 66 kg

DRUGS (15)
  1. ZITHROMAX [Suspect]
     Indication: BACTERIAL INFECTION
     Route: 048
     Dates: start: 20080825
  2. BENADRYL [Suspect]
     Indication: HYPERSENSITIVITY
  3. ALLEREST [Suspect]
     Indication: HYPERSENSITIVITY
  4. BENZODIAZEPINE DERIVATIVES [Suspect]
  5. HOMEOPATHIC PREPARATION [Concomitant]
  6. ENZYMES [Concomitant]
  7. ALPRAZOLAM [Concomitant]
     Dates: start: 20080820
  8. DIFLUCAN [Concomitant]
     Dates: start: 20080825
  9. LORAZEPAM [Concomitant]
     Dates: start: 20080826
  10. ATIVAN [Concomitant]
     Dates: start: 20081001
  11. LITHIUM CARBONATE [Concomitant]
     Dates: start: 20081002
  12. ALL OTHER THERAPEUTIC PRODUCTS [Concomitant]
  13. SEROTONIN ANTAGONISTS [Concomitant]
     Route: 042
  14. HYDROCORTISONE [Concomitant]
     Route: 030
  15. VITAMINS [Concomitant]

REACTIONS (26)
  - ADVERSE EVENT [None]
  - ANXIETY [None]
  - CHILLS [None]
  - DELUSION [None]
  - DIZZINESS [None]
  - DRUG CLEARANCE DECREASED [None]
  - DRUG TOXICITY [None]
  - DRY MOUTH [None]
  - EMOTIONAL DISORDER [None]
  - HEPATOTOXICITY [None]
  - HYPERSENSITIVITY [None]
  - INSOMNIA [None]
  - MALAISE [None]
  - NASAL CONGESTION [None]
  - NASOPHARYNGITIS [None]
  - NERVOUSNESS [None]
  - OTOSALPINGITIS [None]
  - PAIN [None]
  - POSTNASAL DRIP [None]
  - PRESYNCOPE [None]
  - PRODUCT QUALITY ISSUE [None]
  - RHINORRHOEA [None]
  - SKIN DISCOLOURATION [None]
  - SNEEZING [None]
  - SOMNOLENCE [None]
  - TREMOR [None]
